FAERS Safety Report 21303094 (Version 1)
Quarter: 2022Q3

REPORT INFORMATION
  Report Type: Spontaneous
  Country: US (occurrence: None)
  Receive Date: 20220907
  Receipt Date: 20220907
  Transmission Date: 20221027
  Serious: Yes (Hospitalization, Disabling)
  Sender: FDA-Public Use
  Company Number: None

PATIENT
  Age: 88 Year
  Sex: Male
  Weight: 67.5 kg

DRUGS (2)
  1. TRULICITY [Suspect]
     Active Substance: DULAGLUTIDE
     Indication: Product used for unknown indication
     Dates: start: 20220104, end: 20220418
  2. PFIZER-BIONTECH COVID-19 VACCINE [Suspect]
     Active Substance: TOZINAMERAN

REACTIONS (17)
  - Therapy cessation [None]
  - General physical health deterioration [None]
  - Weight decreased [None]
  - Loss of personal independence in daily activities [None]
  - Exercise tolerance decreased [None]
  - Poor quality sleep [None]
  - Discomfort [None]
  - Fatigue [None]
  - Depression [None]
  - Arthralgia [None]
  - Oedema peripheral [None]
  - Cellulitis [None]
  - Arthropathy [None]
  - Grip strength decreased [None]
  - Fine motor skill dysfunction [None]
  - Walking aid user [None]
  - Walking aid user [None]

NARRATIVE: CASE EVENT DATE: 20220506
